FAERS Safety Report 20599141 (Version 1)
Quarter: 2022Q1

REPORT INFORMATION
  Report Type: Spontaneous
  Country: US (occurrence: US)
  Receive Date: 20220315
  Receipt Date: 20220315
  Transmission Date: 20220423
  Serious: No
  Sender: FDA-Public Use
  Company Number: US-SA-SAC20220307002084

PATIENT
  Age: 41 Year
  Sex: Male

DRUGS (1)
  1. DUPIXENT [Suspect]
     Active Substance: DUPILUMAB
     Indication: Dermatitis atopic
     Dosage: 300 MG, QOW
     Route: 058
     Dates: start: 20211112

REACTIONS (4)
  - Pyrexia [Not Recovered/Not Resolved]
  - Formication [Not Recovered/Not Resolved]
  - Hyperhidrosis [Recovered/Resolved]
  - Pruritus [Not Recovered/Not Resolved]
